FAERS Safety Report 4664734-6 (Version None)
Quarter: 2005Q2

REPORT INFORMATION
  Report Type: 
  Country: None (occurrence: None)
  Receive Date: 20050516
  Receipt Date: 20050502
  Transmission Date: 20051028
  Serious: Yes (Death, Hospitalization)
  Sender: FDA-Public Use
  Company Number: HQWYE184822APR05

PATIENT
  Age: 60 Year
  Sex: Female

DRUGS (5)
  1. VENLAFAXINE HCL [Suspect]
     Indication: DEPRESSION
     Dosage: 50 MG, ^30 TBL^ (OVERDOSE AMOUNT), ORAL
     Route: 048
     Dates: start: 20050418, end: 20050418
  2. VENLAFAXINE HCL [Suspect]
     Indication: SUICIDE ATTEMPT
     Dosage: 50 MG, ^30 TBL^ (OVERDOSE AMOUNT), ORAL
     Route: 048
     Dates: start: 20050418, end: 20050418
  3. GLUCOPHAGE [Suspect]
     Indication: DIABETES MELLITUS
     Dosage: ^850 MG^, ^40 TBL^ (OVERDOSE AMOUNT)
     Dates: start: 20050418, end: 20050418
  4. HYPNOGEN (ZOLPIDEM TARTRATE, ) [Suspect]
     Dosage: 10 MG, ^30 TBL^ (OVERDOSE AMOUNT)
     Dates: start: 20050418, end: 20050418
  5. DIAPREL (GLICLAZIDE0 [Concomitant]

REACTIONS (16)
  - BLOOD BICARBONATE [None]
  - BLOOD BICARBONATE ABNORMAL [None]
  - BLOOD POTASSIUM INCREASED [None]
  - COMPLETED SUICIDE [None]
  - DEHYDRATION [None]
  - DROOLING [None]
  - GASTROINTESTINAL MOTILITY DISORDER [None]
  - GLASGOW COMA SCALE ABNORMAL [None]
  - INTENTIONAL MISUSE [None]
  - LOSS OF CONSCIOUSNESS [None]
  - MULTIPLE DRUG OVERDOSE [None]
  - OLIGURIA [None]
  - PCO2 DECREASED [None]
  - PCO2 INCREASED [None]
  - PH BODY FLUID DECREASED [None]
  - WHITE BLOOD CELL COUNT INCREASED [None]
